FAERS Safety Report 14659267 (Version 2)
Quarter: 2018Q2

REPORT INFORMATION
  Report Type: Spontaneous
  Country: GB (occurrence: FR)
  Receive Date: 20180320
  Receipt Date: 20180504
  Transmission Date: 20180711
  Serious: Yes (Other)
  Sender: FDA-Public Use
  Company Number: FR-FRESENIUS KABI-FK201803019

PATIENT
  Age: 1 Year
  Sex: Female

DRUGS (10)
  1. CERNEVIT [Suspect]
     Active Substance: VITAMINS
     Indication: PARENTERAL NUTRITION
     Route: 042
  2. OE-PEDIATRIC AGUETTANT [Suspect]
     Active Substance: MINERALS
     Indication: PARENTERAL NUTRITION
     Route: 042
  3. MAGNESIUM CHLORIDE. [Suspect]
     Active Substance: MAGNESIUM CHLORIDE
     Indication: PARENTERAL NUTRITION
     Route: 042
  4. SODIUM LACTATE. [Suspect]
     Active Substance: SODIUM LACTATE
     Indication: PARENTERAL NUTRITION
     Route: 042
  5. GLUCOSE CALCIUM 10% [Suspect]
     Active Substance: CALCIUM\DEXTROSE
     Indication: PARENTERAL NUTRITION
     Route: 042
  6. POTASSIUM CHLORIDE (MANUFACTURER UNKNOWN) [Suspect]
     Active Substance: POTASSIUM CHLORIDE
     Indication: PARENTERAL NUTRITION
     Route: 042
  7. SMOFLIPID [Suspect]
     Active Substance: FISH OIL\MEDIUM-CHAIN TRIGLYCERIDES\OLIVE OIL\SOYBEAN OIL
     Indication: PARENTERAL NUTRITION
     Route: 042
  8. GLUCOSE (MANUFACTURER UNKNOWN) [Suspect]
     Active Substance: DEXTROSE
     Indication: PARENTERAL NUTRITION
     Route: 042
  9. PHOSPHATE DE POTASSIUM (POTASSIUM PHOSPHATE, DIBASIC\POTASSIUM PHOSPHATE, MONOBASIC) [Suspect]
     Active Substance: POTASSIUM PHOSPHATE, DIBASIC\POTASSIUM PHOSPHATE, MONOBASIC
     Indication: PARENTERAL NUTRITION
     Route: 042
  10. SODIUM CHLORIDE (MANUFACTURER UNKNOWN) [Suspect]
     Active Substance: SODIUM CHLORIDE
     Indication: PARENTERAL NUTRITION
     Route: 042

REACTIONS (2)
  - Catheter site infection [Recovered/Resolved]
  - Bacterial pyelonephritis [Recovered/Resolved]

NARRATIVE: CASE EVENT DATE: 20180128
